FAERS Safety Report 12171624 (Version 1)
Quarter: 2016Q1

REPORT INFORMATION
  Report Type: Spontaneous
  Country: US (occurrence: US)
  Receive Date: 20160311
  Receipt Date: 20160311
  Transmission Date: 20160526
  Serious: Yes (Hospitalization)
  Sender: FDA-Public Use
  Company Number: US-SA-2016SA048953

PATIENT
  Age: 17 Year
  Sex: Female
  Weight: 94.8 kg

DRUGS (1)
  1. LUMIZYME [Suspect]
     Active Substance: ALGLUCOSIDASE ALFA
     Indication: GLYCOGEN STORAGE DISEASE TYPE II
     Route: 042
     Dates: start: 20150209

REACTIONS (1)
  - Medical device site infection [Recovered/Resolved]

NARRATIVE: CASE EVENT DATE: 20160229
